FAERS Safety Report 17532869 (Version 2)
Quarter: 2020Q1

REPORT INFORMATION
  Report Type: Spontaneous
  Country: US (occurrence: US)
  Receive Date: 20200312
  Receipt Date: 20200326
  Transmission Date: 20200409
  Serious: Yes (Other)
  Sender: FDA-Public Use
  Company Number: US-PFIZER INC-2020106583

PATIENT
  Age: 71 Year
  Sex: Male
  Weight: 62.6 kg

DRUGS (10)
  1. LORAZEPAM. [Suspect]
     Active Substance: LORAZEPAM
     Indication: ANXIETY
     Dosage: 0.5 MG, UNK
     Dates: start: 2005
  2. LORAZEPAM. [Suspect]
     Active Substance: LORAZEPAM
     Dosage: 2 MG, DAILY
  3. FOSAMAX [Concomitant]
     Active Substance: ALENDRONATE SODIUM
     Dosage: 70 MG, WEEKLY
  4. LORAZEPAM. [Suspect]
     Active Substance: LORAZEPAM
     Dosage: 1 MG, UNK
  5. LORAZEPAM. [Suspect]
     Active Substance: LORAZEPAM
     Dosage: 2 MG, 2X/DAY
  6. SIMVASTATIN. [Concomitant]
     Active Substance: SIMVASTATIN
     Dosage: 40 MG,
  7. LORAZEPAM. [Suspect]
     Active Substance: LORAZEPAM
     Dosage: 1.5 MG, UNK
  8. LORAZEPAM. [Suspect]
     Active Substance: LORAZEPAM
     Dosage: 0.5 MG, 3X/DAY, (0.5MG THREE TIMES A DAY )
  9. EZETIMIBE. [Concomitant]
     Active Substance: EZETIMIBE
     Dosage: 10 MG, UNK
  10. LYRICA [Concomitant]
     Active Substance: PREGABALIN
     Dosage: UNK (FOR 2 FILL UP ONLY)

REACTIONS (7)
  - Drug dependence [Unknown]
  - Depression [Unknown]
  - Neuropathy peripheral [Unknown]
  - Headache [Unknown]
  - Eye disorder [Unknown]
  - Eye oedema [Unknown]
  - Eye pain [Unknown]
